FAERS Safety Report 23738233 (Version 1)
Quarter: 2024Q2

REPORT INFORMATION
  Report Type: Spontaneous
  Country: CA (occurrence: CA)
  Receive Date: 20240412
  Receipt Date: 20240412
  Transmission Date: 20240716
  Serious: Yes (Other)
  Sender: FDA-Public Use
  Company Number: CA-PFIZER INC-202400083556

PATIENT
  Age: 66 Year
  Sex: Male

DRUGS (14)
  1. CIPROFLOXACIN HYDROCHLORIDE [Suspect]
     Active Substance: CIPROFLOXACIN HYDROCHLORIDE
  2. FILGRASTIM [Suspect]
     Active Substance: FILGRASTIM
  3. FLUCONAZOLE [Suspect]
     Active Substance: FLUCONAZOLE
  4. LIDOCAINE HYDROCHLORIDE [Suspect]
     Active Substance: LIDOCAINE HYDROCHLORIDE
  5. POTASSIUM CHLORIDE [Suspect]
     Active Substance: POTASSIUM CHLORIDE
  6. DIMENHYDRINATE [Suspect]
     Active Substance: DIMENHYDRINATE
  7. ASPIRIN [Suspect]
     Active Substance: ASPIRIN
     Route: 065
  8. AMLODIPINE\TELMISARTAN [Suspect]
     Active Substance: AMLODIPINE\TELMISARTAN
  9. MAGNESIUM OXIDE [Suspect]
     Active Substance: MAGNESIUM OXIDE
  10. METFORMIN [Suspect]
     Active Substance: METFORMIN HYDROCHLORIDE
  11. OLANZAPINE [Suspect]
     Active Substance: OLANZAPINE
  12. PANTOPRAZOLE [Suspect]
     Active Substance: PANTOPRAZOLE
  13. ROSUVASTATIN [Suspect]
     Active Substance: ROSUVASTATIN
     Route: 058
  14. VALACYCLOVIR [Suspect]
     Active Substance: VALACYCLOVIR HYDROCHLORIDE

REACTIONS (1)
  - Febrile neutropenia [Unknown]
